FAERS Safety Report 18204934 (Version 1)
Quarter: 2020Q3

REPORT INFORMATION
  Report Type: Spontaneous
  Country: US (occurrence: US)
  Receive Date: 20200828
  Receipt Date: 20200828
  Transmission Date: 20201103
  Serious: No
  Sender: FDA-Public Use
  Company Number: US-AMGEN-USASP2020138067

PATIENT
  Age: 47 Year
  Sex: Female

DRUGS (2)
  1. ENTRESTO [Concomitant]
     Active Substance: SACUBITRIL\VALSARTAN
     Indication: TACHYCARDIA
     Dosage: UNK
  2. CORLANOR [Suspect]
     Active Substance: IVABRADINE HYDROCHLORIDE
     Indication: TACHYCARDIA
     Dosage: 5 MILLIGRAM, BID
     Route: 065

REACTIONS (3)
  - Ejection fraction decreased [Unknown]
  - Off label use [Unknown]
  - Tachycardia [Unknown]
